FAERS Safety Report 7877706-5 (Version None)
Quarter: 2011Q4

REPORT INFORMATION
  Report Type: 
  Country: None (occurrence: None)
  Receive Date: 20111031
  Receipt Date: 20111031
  Transmission Date: 20120403
  Serious: Yes (Hospitalization)
  Sender: FDA-Public Use
  Company Number: None

PATIENT
  Age: 55 Year
  Sex: Female
  Weight: 108.8 kg

DRUGS (5)
  1. VIVELLE [Concomitant]
  2. ASPIRIN [Concomitant]
  3. LOVAZA [Concomitant]
  4. ZESTORETIC [Suspect]
     Indication: HYPERTENSION
     Dosage: ONE TABLET
     Route: 048
  5. VITAMIN D [Concomitant]

REACTIONS (1)
  - ANGIOEDEMA [None]
